FAERS Safety Report 22918372 (Version 4)
Quarter: 2024Q2

REPORT INFORMATION
  Report Type: Other
  Country: US (occurrence: US)
  Receive Date: 20230907
  Receipt Date: 20240619
  Transmission Date: 20240716
  Serious: No
  Sender: FDA-Public Use
  Company Number: US-TRAVERE-2023TVT00280

PATIENT
  Age: 37 Year
  Sex: Female

DRUGS (2)
  1. FILSPARI [Suspect]
     Active Substance: SPARSENTAN
     Indication: Product used for unknown indication
     Dosage: 400 MG
     Route: 048
  2. FILSPARI [Suspect]
     Active Substance: SPARSENTAN
     Dosage: 200 MG
     Route: 048

REACTIONS (9)
  - Pyrexia [Unknown]
  - Blood urine present [Unknown]
  - Headache [Unknown]
  - Oropharyngeal pain [Unknown]
  - Product dose omission issue [Unknown]
  - Hypotension [Recovered/Resolved]
  - Protein urine present [Unknown]
  - Skin infection [Unknown]
  - Incorrect dose administered [Unknown]

NARRATIVE: CASE EVENT DATE: 20230626
